FAERS Safety Report 11785504 (Version 1)
Quarter: 2015Q4

REPORT INFORMATION
  Report Type: Spontaneous
  Country: US (occurrence: US)
  Receive Date: 20151130
  Receipt Date: 20151130
  Transmission Date: 20160305
  Serious: No
  Sender: FDA-Public Use
  Company Number: US-BIOGENIDEC-2015BI155787

PATIENT
  Age: 37 Year
  Sex: Female

DRUGS (2)
  1. AVONEX [Concomitant]
     Active Substance: INTERFERON BETA-1A
     Indication: MULTIPLE SCLEROSIS
     Route: 030
     Dates: start: 20110520
  2. TECFIDERA [Suspect]
     Active Substance: DIMETHYL FUMARATE
     Indication: MULTIPLE SCLEROSIS
     Dates: start: 20141007

REACTIONS (8)
  - Pruritus [Recovered/Resolved]
  - Burning sensation [Recovered/Resolved]
  - Depressed mood [Not Recovered/Not Resolved]
  - Dyspepsia [Recovered/Resolved]
  - White blood cell count decreased [Unknown]
  - Intentional underdose [Not Recovered/Not Resolved]
  - Flushing [Recovered/Resolved]
  - Gastrointestinal infection [Recovered/Resolved]

NARRATIVE: CASE EVENT DATE: 20151121
